FAERS Safety Report 8169448-6 (Version None)
Quarter: 2012Q1

REPORT INFORMATION
  Report Type: 
  Country: None (occurrence: None)
  Receive Date: 20120228
  Receipt Date: 20120223
  Transmission Date: 20120608
  Serious: Yes (Death)
  Sender: FDA-Public Use
  Company Number: US-BAYER-2012-004053

PATIENT
  Age: 41 Year
  Sex: Female

DRUGS (1)
  1. YASMIN [Suspect]
     Route: 048

REACTIONS (3)
  - EMOTIONAL DISTRESS [None]
  - INJURY [None]
  - CEREBRAL INFARCTION [None]
